FAERS Safety Report 12363195 (Version 2)
Quarter: 2016Q3

REPORT INFORMATION
  Report Type: Report from Study
  Country: KR (occurrence: KR)
  Receive Date: 20160512
  Receipt Date: 20160722
  Transmission Date: 20161109
  Serious: Yes (Life-Threatening)
  Sender: FDA-Public Use
  Company Number: KR-SHIONOGI, INC-2016000520

PATIENT
  Age: 75 Year
  Sex: Male
  Weight: 66 kg

DRUGS (35)
  1. DUROGESIC [Concomitant]
     Active Substance: FENTANYL
     Dosage: UNK
     Route: 065
     Dates: start: 20120119, end: 20120124
  2. MG TNA [Concomitant]
     Dosage: UNK
     Route: 065
     Dates: start: 20120130, end: 20120130
  3. MORPHINE HYDROCHLORIDE [Concomitant]
     Active Substance: MORPHINE HYDROCHLORIDE
     Dosage: UNK
     Route: 065
     Dates: start: 20120103, end: 20120125
  4. HEPA-MERZ INFUSION [Concomitant]
     Route: 065
     Dates: start: 20120116, end: 20120125
  5. MEGETROL [Concomitant]
     Dosage: UNK
     Route: 065
     Dates: start: 20120108, end: 20120125
  6. EPINEPHRINE HYDROCHLORIDE. [Concomitant]
     Active Substance: EPINEPHRINE HYDROCHLORIDE
     Dosage: UNK
     Route: 065
     Dates: start: 20120125, end: 20120125
  7. CORDARONE [Concomitant]
     Active Substance: AMIODARONE HYDROCHLORIDE
     Dosage: UNK
     Route: 065
     Dates: start: 20120125, end: 20120125
  8. DOPAMINE HYDROCHLORIDE. [Concomitant]
     Active Substance: DOPAMINE HYDROCHLORIDE
     Dosage: UNK
     Route: 065
     Dates: start: 20120126, end: 20120205
  9. KEPPRA [Concomitant]
     Active Substance: LEVETIRACETAM
     Dosage: UNK
     Route: 065
     Dates: start: 20120128, end: 20120201
  10. TARCEVA [Concomitant]
     Active Substance: ERLOTINIB HYDROCHLORIDE
     Dosage: UNK
     Route: 065
     Dates: start: 20120111, end: 20120125
  11. HUMAN SERUM ALBUMIN [Concomitant]
     Active Substance: ALBUMIN HUMAN
     Dosage: UNK
     Route: 065
     Dates: start: 20120117, end: 20120117
  12. DESOWEN [Concomitant]
     Active Substance: DESONIDE
     Dosage: UNK
     Route: 065
     Dates: start: 20120118, end: 20120118
  13. D-MANNITOL [Concomitant]
     Active Substance: MANNITOL
     Dosage: UNK
     Route: 065
     Dates: start: 20120125, end: 20120126
  14. FINIBAX [Suspect]
     Active Substance: DORIPENEM MONOHYDRATE
     Dosage: 0.25 G, TID
     Route: 065
     Dates: start: 20120117, end: 20120201
  15. HEPA-MERZ INFUSION [Concomitant]
     Route: 065
     Dates: start: 20120108, end: 20120125
  16. HEPA-MERZ INFUSION [Concomitant]
     Route: 065
     Dates: start: 20120118, end: 20120118
  17. LASIX [Concomitant]
     Active Substance: FUROSEMIDE
     Dosage: UNK
     Route: 065
     Dates: start: 20120114, end: 20120125
  18. HEPA-MERZ INFUSION [Concomitant]
     Route: 065
     Dates: start: 20120117, end: 20120117
  19. HEPA-MERZ INFUSION [Concomitant]
     Route: 065
     Dates: start: 20120125, end: 20120203
  20. HEPA-MERZ INFUSION [Concomitant]
     Route: 065
     Dates: start: 20120131, end: 20120131
  21. PLAKON [Concomitant]
     Dosage: UNK
     Route: 065
     Dates: start: 20120116, end: 20120125
  22. KETOPROFEN. [Concomitant]
     Active Substance: KETOPROFEN
     Dosage: UNK
     Route: 065
     Dates: start: 20120125, end: 20120129
  23. FAMOTIDINE. [Concomitant]
     Active Substance: FAMOTIDINE
     Dosage: UNK
     Route: 065
     Dates: start: 20120102, end: 20120205
  24. SODIUM CHLORIDE. [Concomitant]
     Active Substance: SODIUM CHLORIDE
     Dosage: UNK
     Route: 065
     Dates: start: 20120103, end: 20120205
  25. MIDAZOLAM [Concomitant]
     Active Substance: MIDAZOLAM\MIDAZOLAM HYDROCHLORIDE
     Dosage: UNK
     Route: 065
     Dates: start: 20120125, end: 20120205
  26. TYLENOL ER [Concomitant]
     Active Substance: ACETAMINOPHEN
     Dosage: UNK
     Route: 065
     Dates: start: 20120130, end: 20120130
  27. TAMIPOOL [Concomitant]
     Active Substance: VITAMINS
     Dosage: UNK
     Route: 065
     Dates: start: 20120102, end: 20120202
  28. HEPA-MERZ INFUSION [Concomitant]
     Dosage: UNK
     Route: 065
     Dates: start: 20120103, end: 20120205
  29. HEPA-MERZ INFUSION [Concomitant]
     Route: 065
     Dates: start: 20120111, end: 20120203
  30. LASIX [Concomitant]
     Active Substance: FUROSEMIDE
     Dosage: UNK
     Route: 065
     Dates: start: 20120116, end: 20120205
  31. NORPINE [Concomitant]
     Dosage: UNK
     Route: 065
     Dates: start: 20120131, end: 20120131
  32. DUPHALAC [Concomitant]
     Active Substance: LACTULOSE
     Dosage: UNK
     Route: 065
     Dates: start: 20120111, end: 20120203
  33. COMBIFLEX PERI [Concomitant]
     Dosage: UNK
     Route: 065
     Dates: start: 20120117, end: 20120117
  34. DOPAMINE HCL [Concomitant]
     Active Substance: DOPAMINE HYDROCHLORIDE
     Dosage: UNK
     Route: 065
     Dates: start: 20120125, end: 20120203
  35. NADOXOL [Concomitant]
     Dosage: UNK
     Route: 065
     Dates: start: 20120129, end: 20120205

REACTIONS (4)
  - Aspartate aminotransferase increased [Not Recovered/Not Resolved]
  - Cardiac arrest [Recovered/Resolved with Sequelae]
  - Pyrexia [Recovered/Resolved]
  - Alanine aminotransferase increased [Not Recovered/Not Resolved]

NARRATIVE: CASE EVENT DATE: 20120130
